FAERS Safety Report 8416873-1 (Version None)
Quarter: 2012Q2

REPORT INFORMATION
  Report Type: 
  Country: None (occurrence: None)
  Receive Date: 20120606
  Receipt Date: 20120604
  Transmission Date: 20120825
  Serious: Yes (Hospitalization)
  Sender: FDA-Public Use
  Company Number: IT-BRISTOL-MYERS SQUIBB COMPANY-16606543

PATIENT
  Age: 73 Year
  Sex: Male

DRUGS (2)
  1. COUMADIN [Suspect]
     Indication: PULMONARY EMBOLISM
     Dosage: STOPPED DATE: 8MAR12
     Route: 048
     Dates: start: 20110701
  2. RAMIPRIL [Concomitant]

REACTIONS (2)
  - HAEMATURIA [None]
  - CYSTITIS HAEMORRHAGIC [None]
